FAERS Safety Report 19375363 (Version 3)
Quarter: 2021Q3

REPORT INFORMATION
  Report Type: Spontaneous
  Country: JP (occurrence: JP)
  Receive Date: 20210604
  Receipt Date: 20210928
  Transmission Date: 20211014
  Serious: Yes (Hospitalization, Other)
  Sender: FDA-Public Use
  Company Number: JP-009507513-2106JPN001048

PATIENT
  Age: 76 Year
  Sex: Female
  Weight: 51 kg

DRUGS (39)
  1. CANAGLU [Concomitant]
     Active Substance: CANAGLIFLOZIN
     Dosage: 100 MG, EVERYDAY
     Route: 048
  2. CANAGLU [Concomitant]
     Active Substance: CANAGLIFLOZIN
     Dosage: 100 MG, EVERYDAY
     Route: 048
  3. ROSUZET [Concomitant]
     Active Substance: EZETIMIBE\ROSUVASTATIN
     Dosage: 1 DF, EVERYDAY
     Route: 048
  4. BETAMETHASONE BUTYRATE PROPIONATE [Concomitant]
     Active Substance: BETAMETHASONE BUTYRATE PROPIONATE
     Dosage: UNK, Q12H
     Route: 061
  5. ETHYL ICOSAPENTATE [Concomitant]
     Active Substance: ICOSAPENT ETHYL
     Dosage: 600 MG, Q8H
     Route: 048
  6. LUNESTA [Concomitant]
     Active Substance: ESZOPICLONE
     Dosage: 2 MILLIGRAM, EVERY DAY
     Route: 048
  7. LORAZEPAM. [Concomitant]
     Active Substance: LORAZEPAM
     Dosage: 0.5 MG, Q12H
     Route: 048
  8. TULOBUTEROL [Concomitant]
     Active Substance: TULOBUTEROL
     Dosage: 2 MG, EVERYDAY; FORMULATION: TAPE (INCLUDING POULTICE)
     Route: 062
  9. LOXOPROFEN NA [Concomitant]
     Active Substance: LOXOPROFEN SODIUM
     Dosage: 50 MG, EVERYDAY; FORMUATION: TAPE (INCLUDING POULTICE)
     Route: 062
  10. MS ONSHIPPU [Concomitant]
     Active Substance: CAMPHOR\CAPSICUM\METHYL SALICYLATE
     Dosage: UNK, Q12H; FORMULATION: TAPE (INCLUDING POULTICE)
     Route: 062
  11. ATEDIO [Concomitant]
     Active Substance: CILNIDIPINE\VALSARTAN
     Dosage: 1 DF, EVERYDAY
     Route: 048
  12. CELECOXIB. [Concomitant]
     Active Substance: CELECOXIB
     Dosage: 100 MG, Q12H
     Route: 048
  13. ROSUZET [Concomitant]
     Active Substance: EZETIMIBE\ROSUVASTATIN
     Dosage: 1 DOSAGE FORM (DF), EVERYDAY
     Route: 048
  14. LUNESTA [Concomitant]
     Active Substance: ESZOPICLONE
     Dosage: 2 MG, EVERYDAY
     Route: 048
  15. LORAZEPAM. [Concomitant]
     Active Substance: LORAZEPAM
     Dosage: 0.5 MG, Q12H
     Route: 048
  16. EURAX [Concomitant]
     Active Substance: CROTAMITON
     Dosage: UNK, Q12H; FORMULATION: OINTMENT, CREAM
     Route: 061
  17. EURAX [Concomitant]
     Active Substance: CROTAMITON
     Dosage: UNK, Q12H
     Route: 061
  18. METGLUCO [Concomitant]
     Active Substance: METFORMIN HYDROCHLORIDE
     Dosage: 500 MG, Q12H
     Route: 048
  19. CILOSTAZOL. [Concomitant]
     Active Substance: CILOSTAZOL
     Dosage: 100 MG, Q12H
     Route: 048
  20. ATEDIO [Concomitant]
     Active Substance: CILNIDIPINE\VALSARTAN
     Dosage: 1 DOSAGE FORM (DF), EVERYDAY
     Route: 048
  21. NEXIUM [Concomitant]
     Active Substance: ESOMEPRAZOLE MAGNESIUM
     Dosage: 20 MG, EVERYDAY
     Route: 048
  22. ROSUVASTATIN. [Concomitant]
     Active Substance: ROSUVASTATIN
     Dosage: 10 MG, EVERYDAY
     Route: 048
  23. BETAMETHASONE BUTYRATE PROPIONATE [Concomitant]
     Active Substance: BETAMETHASONE BUTYRATE PROPIONATE
     Dosage: UNK, Q12H
     Route: 061
  24. TRELEGY ELLIPTA [Concomitant]
     Active Substance: FLUTICASONE FUROATE\UMECLIDINIUM BROMIDE\VILANTEROL TRIFENATATE
     Dosage: UNK, EVERYDAY; FORMULATION: INHALER
     Route: 055
  25. TRELEGY ELLIPTA [Concomitant]
     Active Substance: FLUTICASONE FUROATE\UMECLIDINIUM BROMIDE\VILANTEROL TRIFENATATE
     Dosage: UNK, EVERYDAY
     Route: 055
  26. GLACTIV [Suspect]
     Active Substance: SITAGLIPTIN
     Indication: TYPE 2 DIABETES MELLITUS
     Dosage: 50 MG, EVERYDAY
     Route: 048
  27. TULOBUTEROL [Concomitant]
     Active Substance: TULOBUTEROL
     Dosage: 2 MG, EVERYDAY
     Route: 062
  28. MS ONSHIPPU [Concomitant]
     Active Substance: CAMPHOR\CAPSICUM\METHYL SALICYLATE
     Dosage: UNK, Q12H
     Route: 062
  29. ETHYL ICOSAPENTATE [Concomitant]
     Active Substance: ICOSAPENT ETHYL
     Dosage: 600 MG, Q8H
     Route: 048
  30. HOCHUEKKITO [ANGELICA ACUTILOBA ROOT;ASTRAGALUS SPP. ROOT;ATRACTYLODES [Concomitant]
     Active Substance: HERBALS
     Dosage: 1 DOSAGE FORM (DF), Q12H
     Route: 048
  31. CILOSTAZOL. [Concomitant]
     Active Substance: CILOSTAZOL
     Dosage: 100 MG, Q12H
     Route: 048
  32. HYALURONATE NA [Concomitant]
     Active Substance: HYALURONATE SODIUM
     Dosage: UNK, Q2W
     Route: 065
  33. HYALURONATE NA [Concomitant]
     Active Substance: HYALURONATE SODIUM
     Dosage: UNK, Q2W
     Route: 065
  34. METGLUCO [Concomitant]
     Active Substance: METFORMIN HYDROCHLORIDE
     Dosage: 500 MG, Q12H
     Route: 048
  35. CELECOXIB. [Concomitant]
     Active Substance: CELECOXIB
     Dosage: 100 MG, Q12H
     Route: 048
  36. CYMBALTA [Concomitant]
     Active Substance: DULOXETINE HYDROCHLORIDE
     Dosage: 60 MG, EVERYDAY
     Route: 048
  37. CYMBALTA [Concomitant]
     Active Substance: DULOXETINE HYDROCHLORIDE
     Dosage: 60 MG, EVERYDAY
     Route: 048
  38. ROSUVASTATIN. [Concomitant]
     Active Substance: ROSUVASTATIN
     Dosage: 10 MG, EVERYDAY
     Route: 048
  39. LOXOPROFEN NA [Concomitant]
     Active Substance: LOXOPROFEN SODIUM
     Dosage: 100 MG, EVERYDAY; FORMUATION: TAPE (INCLUDING POULTICE)
     Route: 062

REACTIONS (1)
  - Anaphylactic shock [Recovering/Resolving]

NARRATIVE: CASE EVENT DATE: 20210601
